FAERS Safety Report 5095488-X (Version None)
Quarter: 2006Q3

REPORT INFORMATION
  Report Type: 
  Country: None (occurrence: None)
  Receive Date: 20060831
  Receipt Date: 20060831
  Transmission Date: 20061208
  Serious: No
  Sender: FDA-Public Use
  Company Number: None

PATIENT
  Age: 43 Year
  Sex: Female
  Weight: 79.3795 kg

DRUGS (1)
  1. GAMMAGARD [Suspect]
     Dosage: 30 GM Q 4 WKS IV
     Route: 042
     Dates: start: 20060829

REACTIONS (1)
  - RASH [None]
